FAERS Safety Report 7157668-9 (Version None)
Quarter: 2010Q4

REPORT INFORMATION
  Report Type: 
  Country: None (occurrence: None)
  Receive Date: 20101214
  Receipt Date: 20100312
  Transmission Date: 20110411
  Serious: Yes (Other)
  Sender: FDA-Public Use
  Company Number: US-ASTRAZENECA-2010SE11001

PATIENT
  Sex: Male
  Weight: 129.3 kg

DRUGS (3)
  1. CRESTOR [Suspect]
     Indication: BLOOD CHOLESTEROL INCREASED
     Route: 048
     Dates: start: 20060101
  2. AVANDIA [Concomitant]
     Indication: DIABETES MELLITUS
  3. LANTUS [Concomitant]
     Indication: DIABETES MELLITUS

REACTIONS (1)
  - HYPERGLYCAEMIA [None]
